FAERS Safety Report 8329821 (Version 2)
Quarter: 2013Q1

REPORT INFORMATION
  Report Type: Spontaneous
  Country: US (occurrence: US)
  Receive Date: 20120110
  Receipt Date: 20130205
  Transmission Date: 20140127
  Serious: Yes (Other)
  Sender: FDA-Public Use
  Company Number: US-RB-029924-11

PATIENT
  Age: 33 None
  Sex: Female

DRUGS (4)
  1. SUBOXONE UNSPECIFIED [Suspect]
     Route: 060
     Dates: start: 20110222, end: 201104
  2. SUBOXONE UNSPECIFIED [Suspect]
     Indication: DRUG DEPENDENCE
     Route: 060
     Dates: start: 201104, end: 201105
  3. SUBOXONE UNSPECIFIED [Suspect]
     Route: 060
     Dates: start: 201105, end: 20110623
  4. GENERIC BUPRENORPHINE [Suspect]
     Indication: DRUG DEPENDENCE
     Route: 060
     Dates: start: 201107, end: 20111009

REACTIONS (7)
  - Exposure during pregnancy [Recovered/Resolved]
  - Underdose [Recovered/Resolved]
  - Drug withdrawal syndrome [Recovered/Resolved]
  - Asthenia [Recovered/Resolved]
  - Decreased appetite [Recovered/Resolved]
  - Gestational hypertension [Recovered/Resolved]
  - Premature delivery [Recovered/Resolved]
